FAERS Safety Report 6603091-2 (Version None)
Quarter: 2010Q1

REPORT INFORMATION
  Report Type: 
  Country: None (occurrence: None)
  Receive Date: 20100226
  Receipt Date: 20100222
  Transmission Date: 20100710
  Serious: Yes (Death, Hospitalization, Other)
  Sender: FDA-Public Use
  Company Number: PHEH2009US15142

PATIENT
  Sex: Female
  Weight: 79.365 kg

DRUGS (49)
  1. EXJADE [Suspect]
     Dosage: 1500 MG, QD
     Route: 048
     Dates: start: 20090929, end: 20091015
  2. LORAZEPAM [Concomitant]
     Indication: ANXIETY
     Dosage: 0.5 MG, QD
     Dates: start: 20090330
  3. ZOFRAN [Concomitant]
     Indication: NAUSEA
     Dosage: 4 MG, PRN
  4. ZOFRAN [Concomitant]
     Indication: VOMITING
  5. MORPHINE [Concomitant]
     Dosage: 2 MG, PRN
  6. LASIX [Concomitant]
     Dosage: 40 MG, UNK
     Route: 042
     Dates: start: 20090330
  7. TYLENOL-500 [Concomitant]
     Dosage: UNK
     Dates: start: 20090804
  8. BENADRYL ^ACHE^ [Concomitant]
     Dosage: 25 MG, UNK
  9. LEVAQUIN [Concomitant]
     Dosage: 250 MG, UNK
     Route: 042
  10. MAGNESIUM SULFATE [Concomitant]
     Dosage: 2 G, UNK
     Route: 042
  11. DULCOLAX [Concomitant]
     Indication: CONSTIPATION
  12. SENNA [Concomitant]
     Dosage: 17.2 MG, PRN
  13. PERCOCET [Concomitant]
     Dosage: 1 TAB Q4HOUR
  14. LACTULOSE [Concomitant]
  15. PHENERGAN HCL [Concomitant]
     Indication: NAUSEA
     Dosage: 6.25 MG, PRN
  16. SODIUM CHLORIDE [Concomitant]
  17. ATROVENT [Concomitant]
     Dosage: 0.5 MG, PRN
     Dates: start: 20090330
  18. PROVENTIL [Concomitant]
     Indication: DYSPNOEA
     Dosage: 25 MG, PRN
  19. AMBIEN [Concomitant]
     Dosage: 5 MG, PRN
     Dates: start: 20090330
  20. MAALOX [Concomitant]
     Dosage: 30 ML, PRN
     Dates: start: 20090330
  21. PHENYLEPHRINE [Concomitant]
  22. VERSED [Concomitant]
  23. DOPAMINE HCL [Concomitant]
     Dosage: 400 MG/250 ML
  24. PIPERACILLIN [Concomitant]
     Dosage: 4.5 G, UNK
  25. VANCOMYCIN [Concomitant]
     Dosage: 1500 MG, UNK
  26. DOBUTAMINE [Concomitant]
     Dosage: 500 MG, UNK
  27. ROBITUSSIN [Concomitant]
     Dosage: 300 MG, PRN
  28. CARDIZEM [Concomitant]
     Dosage: 30 MG, Q6H
     Dates: start: 20091015
  29. METAMUCIL-2 [Concomitant]
     Dosage: UNK
     Dates: start: 20091015
  30. FOLATE SODIUM [Concomitant]
  31. POTASSIUM CHLORIDE [Concomitant]
  32. TESSALON [Concomitant]
     Indication: COUGH
     Dosage: 100 MG, QD
  33. NITROSTAT [Concomitant]
     Indication: CHEST PAIN
     Dosage: 04 MG, PRN
     Route: 060
  34. PROMETH VC [Concomitant]
     Indication: NAUSEA
  35. COMBIVENT [Concomitant]
     Dosage: UNK
  36. DEXTROSE [Concomitant]
  37. INSULIN [Concomitant]
  38. SODIUM BICARBONATE [Concomitant]
     Dosage: 100 MEQ, UNK
  39. SOLU-CORTEF [Concomitant]
  40. SODIUM PHOSPHATE [Concomitant]
  41. CALCIUM GLUCONATE [Concomitant]
  42. ATROPINE [Concomitant]
     Dosage: 0.5 MG, UNK
     Dates: start: 20091015
  43. PROTONIX [Concomitant]
     Dosage: 40 MG, UNK
  44. ZOSYN [Concomitant]
  45. NOVOLOG [Concomitant]
  46. FENTANYL [Concomitant]
  47. INFLUENZA DVG [Concomitant]
  48. HYDROCORTISONE [Concomitant]
  49. LOVENOX [Concomitant]
     Dosage: UNK
     Dates: start: 20090330

REACTIONS (19)
  - ANXIETY [None]
  - ASTHENIA [None]
  - BLOOD CREATININE DECREASED [None]
  - CARDIAC FAILURE CONGESTIVE [None]
  - CLAVICLE FRACTURE [None]
  - DEHYDRATION [None]
  - DIZZINESS [None]
  - DYSPNOEA [None]
  - FALL [None]
  - HAEMOGLOBIN DECREASED [None]
  - MYELODYSPLASTIC SYNDROME [None]
  - NAUSEA [None]
  - PAIN [None]
  - PLEURAL EFFUSION [None]
  - PNEUMONIA [None]
  - PYREXIA [None]
  - RESPIRATORY FAILURE [None]
  - THROMBOCYTOPENIA [None]
  - VOMITING [None]
